FAERS Safety Report 23842084 (Version 2)
Quarter: 2024Q2

REPORT INFORMATION
  Report Type: Spontaneous
  Country: US (occurrence: US)
  Receive Date: 20240510
  Receipt Date: 20240606
  Transmission Date: 20240716
  Serious: Yes (Hospitalization)
  Sender: FDA-Public Use
  Company Number: US-ABBVIE-5754876

PATIENT
  Sex: Male
  Weight: 62 kg

DRUGS (3)
  1. DALVANCE [Suspect]
     Active Substance: DALBAVANCIN
     Indication: Cellulitis
     Dosage: TIME INTERVAL: AS NECESSARY: FORM STRENGTH: 500 MG
     Route: 042
     Dates: start: 20240420, end: 20240421
  2. SOLU-MEDROL [Concomitant]
     Active Substance: METHYLPREDNISOLONE SODIUM SUCCINATE
     Indication: Product used for unknown indication
     Dosage: FORM STRENGTH: 40 MG
  3. ALBUTEROL [Concomitant]
     Active Substance: ALBUTEROL
     Indication: Product used for unknown indication
     Dosage: FORM STRENGTH:2.5 MG NEBULIZER

REACTIONS (6)
  - Chronic obstructive pulmonary disease [Unknown]
  - Wheezing [Unknown]
  - Musculoskeletal discomfort [Unknown]
  - Feeling jittery [Unknown]
  - Chest discomfort [Unknown]
  - Muscle spasms [Unknown]

NARRATIVE: CASE EVENT DATE: 20240101
